FAERS Safety Report 4358241-8 (Version None)
Quarter: 2004Q2

REPORT INFORMATION
  Report Type: 
  Country: None (occurrence: None)
  Receive Date: 20040510
  Receipt Date: 20040401
  Transmission Date: 20050107
  Serious: No
  Sender: FDA-Public Use
  Company Number: A06200400107

PATIENT
  Sex: Female

DRUGS (3)
  1. ELOXATIN [Suspect]
     Dosage: 100 MG/M2 Q2W INTRAVENOUS NOS; A FEW HOURS
     Route: 042
     Dates: end: 20040331
  2. FOLIC ACID [Concomitant]
  3. FLUOROURACIL [Concomitant]

REACTIONS (9)
  - ABDOMINAL PAIN [None]
  - ASTHMA [None]
  - DEPRESSION [None]
  - DIARRHOEA [None]
  - DYSPNOEA [None]
  - HYPERTENSION [None]
  - INSOMNIA [None]
  - NAUSEA [None]
  - VOMITING [None]
